FAERS Safety Report 8186912-4 (Version None)
Quarter: 2012Q1

REPORT INFORMATION
  Report Type: 
  Country: None (occurrence: None)
  Receive Date: 20120306
  Receipt Date: 20120305
  Transmission Date: 20120608
  Serious: Yes (Other)
  Sender: FDA-Public Use
  Company Number: TR-PFIZER INC-2012058391

PATIENT
  Age: 17 Year
  Sex: Female

DRUGS (1)
  1. FLURBIPROFEN [Suspect]
     Dosage: 100 MG, SINGLE
     Route: 048

REACTIONS (1)
  - LOSS OF CONSCIOUSNESS [None]
